FAERS Safety Report 8283228-2 (Version None)
Quarter: 2012Q2

REPORT INFORMATION
  Report Type: 
  Country: None (occurrence: None)
  Receive Date: 20120413
  Receipt Date: 20120402
  Transmission Date: 20120825
  Serious: No
  Sender: FDA-Public Use
  Company Number: CA-ELI_LILLY_AND_COMPANY-CA201202005853

PATIENT
  Sex: Female
  Weight: 65.2 kg

DRUGS (5)
  1. CYMBALTA [Suspect]
     Dosage: 30 MG, QD
  2. CELEBREX [Concomitant]
     Dosage: 200 MG, UNK
     Route: 048
     Dates: start: 20090201
  3. ESTRING [Concomitant]
     Dosage: UNK
     Route: 067
     Dates: start: 20071201
  4. RABEPRAZOLE SODIUM [Concomitant]
     Dosage: 20 MG, QD
     Route: 048
     Dates: start: 20071201
  5. CYMBALTA [Suspect]
     Indication: NECK PAIN
     Dosage: 60 MG, QD
     Dates: start: 20100517, end: 20120227

REACTIONS (4)
  - GAMMA-GLUTAMYLTRANSFERASE DECREASED [None]
  - HEPATIC STEATOSIS [None]
  - SERUM FERRITIN DECREASED [None]
  - ALANINE AMINOTRANSFERASE INCREASED [None]
